FAERS Safety Report 10541166 (Version 1)
Quarter: 2014Q4

REPORT INFORMATION
  Report Type: Spontaneous
  Country: ES (occurrence: ES)
  Receive Date: 20141024
  Receipt Date: 20141024
  Transmission Date: 20150529
  Serious: Yes (Hospitalization)
  Sender: FDA-Public Use
  Company Number: ES-BAYER-2014-153982

PATIENT
  Age: 73 Year
  Sex: Female

DRUGS (1)
  1. SORAFENIB (RAF KINASE INHIBITOR) [Suspect]
     Active Substance: SORAFENIB
     Indication: PAPILLARY THYROID CANCER
     Dosage: 400 MG, BID
     Route: 048

REACTIONS (11)
  - Papillary thyroid cancer [None]
  - Orthopnoea [None]
  - Pleuritic pain [None]
  - Cough [None]
  - Mucosal inflammation [None]
  - Palmar-plantar erythrodysaesthesia syndrome [None]
  - Cardiac failure congestive [None]
  - Oliguria [None]
  - Dyspnoea [None]
  - Metastases to heart [None]
  - Metastases to bone [None]

NARRATIVE: CASE EVENT DATE: 2013
